FAERS Safety Report 10128464 (Version 1)
Quarter: 2014Q2

REPORT INFORMATION
  Report Type: Spontaneous
  Country: US (occurrence: None)
  Receive Date: 20140425
  Receipt Date: 20140425
  Transmission Date: 20141212
  Serious: Yes (Other)
  Sender: FDA-Public Use
  Company Number: None

PATIENT
  Age: 58 Year
  Sex: Male

DRUGS (5)
  1. SOVALDI [Suspect]
     Indication: HEPATITIS C
     Route: 048
     Dates: start: 20140313
  2. PRILOSEC [Concomitant]
  3. LEVOTHYROXINE [Concomitant]
  4. XANAX [Concomitant]
  5. XIFAXAN [Concomitant]

REACTIONS (3)
  - Headache [None]
  - Anaemia [None]
  - Fatigue [None]
